FAERS Safety Report 24111175 (Version 1)
Quarter: 2024Q3

REPORT INFORMATION
  Report Type: Report from Study
  Country: EG (occurrence: EG)
  Receive Date: 20240718
  Receipt Date: 20240718
  Transmission Date: 20241017
  Serious: No
  Sender: SANDOZ
  Company Number: EG-SANDOZ-SDZ2023EG073294

PATIENT
  Sex: Male

DRUGS (4)
  1. OMNITROPE [Suspect]
     Active Substance: SOMATROPIN
     Indication: Growth hormone deficiency
     Dosage: 0.8 MG, QD (STARTED SINCE 2 YEARS)
     Route: 065
     Dates: end: 202301
  2. OMNITROPE [Suspect]
     Active Substance: SOMATROPIN
     Dosage: 0.8 MG, QD (STOPPED SINCE MORE THAN ONE MONTH)
     Route: 065
     Dates: start: 202306
  3. CALCIUM [Concomitant]
     Active Substance: CALCIUM
     Indication: Malnutrition
     Dosage: 5 CM DAILY
     Route: 048
     Dates: start: 2018
  4. IRON [Concomitant]
     Active Substance: IRON
     Indication: Malnutrition
     Dosage: 5 CM DAILY
     Route: 048
     Dates: start: 2018

REACTIONS (3)
  - Product dose omission issue [Not Recovered/Not Resolved]
  - Wrong technique in product usage process [Unknown]
  - Device mechanical issue [Unknown]
